FAERS Safety Report 17690539 (Version 4)
Quarter: 2020Q4

REPORT INFORMATION
  Report Type: Report from Study
  Country: CA (occurrence: CA)
  Receive Date: 20200421
  Receipt Date: 20201207
  Transmission Date: 20210113
  Serious: Yes (Other)
  Sender: FDA-Public Use
  Company Number: PHHY2015CA063455

PATIENT
  Age: 49 Year
  Sex: Male

DRUGS (4)
  1. SANDOSTATIN LAR DEPOT [Suspect]
     Active Substance: OCTREOTIDE ACETATE
     Dosage: UNK
     Route: 065
     Dates: start: 20200212
  2. LUTATHERA [Suspect]
     Active Substance: LUTETIUM OXODOTREOTIDE LU-177
     Indication: NEUROENDOCRINE TUMOUR
     Dosage: UNK
     Route: 065
     Dates: start: 20201127
  3. SANDOSTATIN LAR DEPOT [Suspect]
     Active Substance: OCTREOTIDE ACETATE
     Indication: NEUROENDOCRINE CARCINOMA METASTATIC
     Dosage: 30 MG, QMO (EVERY 4 WEEKS)
     Route: 030
     Dates: start: 20150421
  4. SANDOSTATIN LAR DEPOT [Suspect]
     Active Substance: OCTREOTIDE ACETATE

REACTIONS (19)
  - Herpes zoster [Recovering/Resolving]
  - Diarrhoea [Unknown]
  - Injection site reaction [Recovering/Resolving]
  - Fatigue [Unknown]
  - Heart valve incompetence [Unknown]
  - Anxiety [Unknown]
  - Neuroendocrine tumour [Unknown]
  - Blood pressure increased [Unknown]
  - Nausea [Unknown]
  - Osteoarthritis [Unknown]
  - Arthralgia [Unknown]
  - Body temperature decreased [Unknown]
  - Malaise [Unknown]
  - Heart rate decreased [Unknown]
  - Constipation [Unknown]
  - Injection site haemorrhage [Recovering/Resolving]
  - Injection site erythema [Recovering/Resolving]
  - Haemorrhage [Unknown]
  - Neoplasm progression [Unknown]

NARRATIVE: CASE EVENT DATE: 20150521
